FAERS Safety Report 17755381 (Version 5)
Quarter: 2022Q3

REPORT INFORMATION
  Report Type: Report from Study
  Country: AR (occurrence: AR)
  Receive Date: 20200507
  Receipt Date: 20220914
  Transmission Date: 20221027
  Serious: Yes (Hospitalization)
  Sender: FDA-Public Use
  Company Number: AR-PFIZER INC-2020156271

PATIENT
  Age: 64 Year
  Sex: Male

DRUGS (3)
  1. ENZALUTAMIDE [Suspect]
     Active Substance: ENZALUTAMIDE
     Indication: Prostate cancer metastatic
     Dosage: 160 MG, ONCE DAILY (FIRST LINE MCRPC)
     Route: 048
     Dates: start: 20200227, end: 20200410
  2. TALAZOPARIB [Suspect]
     Active Substance: TALAZOPARIB
     Indication: Prostate cancer metastatic
     Dosage: UNK UNK, ONCE DAILY (FIRST LINE MCRPC)
     Route: 048
     Dates: start: 20200227, end: 20200410
  3. LEUPROLIDE [Concomitant]
     Active Substance: LEUPROLIDE
     Indication: Prostate cancer metastatic
     Dosage: 7.5 MG, CYCLIC [EVERY 30 DAYS (Q30D)]
     Route: 042
     Dates: start: 201806

REACTIONS (2)
  - Blood bilirubin increased [Recovered/Resolved]
  - Meningitis [Recovered/Resolved]

NARRATIVE: CASE EVENT DATE: 20200413
